FAERS Safety Report 19915645 (Version 1)
Quarter: 2021Q4

REPORT INFORMATION
  Report Type: Spontaneous
  Country: GB (occurrence: GB)
  Receive Date: 20211005
  Receipt Date: 20211005
  Transmission Date: 20220303
  Serious: Yes (Disabling)
  Sender: FDA-Public Use
  Company Number: None

PATIENT
  Age: 40 Year
  Sex: Female
  Weight: 101.6 kg

DRUGS (3)
  1. OLANZAPINE [Suspect]
     Active Substance: OLANZAPINE
     Indication: Product used for unknown indication
     Dosage: VARIABLE FOR ALL
     Route: 048
     Dates: start: 201612, end: 202003
  2. RISPERIDONE [Suspect]
     Active Substance: RISPERIDONE
     Indication: Product used for unknown indication
     Dosage: VARIABLE FOR ALL
     Route: 048
     Dates: start: 201612, end: 202003
  3. HALOPERIDOL [Suspect]
     Active Substance: HALOPERIDOL
     Indication: Product used for unknown indication
     Dosage: VARIABLE FOR ALL
     Route: 048
     Dates: start: 201612, end: 202003

REACTIONS (5)
  - Neuralgia [Recovering/Resolving]
  - Muscle twitching [Recovering/Resolving]
  - Ear pain [Unknown]
  - Dyskinesia [Unknown]
  - Hallucination, visual [Unknown]

NARRATIVE: CASE EVENT DATE: 20161201
